FAERS Safety Report 6477438-4 (Version None)
Quarter: 2009Q4

REPORT INFORMATION
  Report Type: 
  Country: None (occurrence: None)
  Receive Date: 20091207
  Receipt Date: 20091103
  Transmission Date: 20100525
  Serious: Yes (Hospitalization)
  Sender: FDA-Public Use
  Company Number: US-SANOFI-AVENTIS-2009SA000548

PATIENT
  Age: 56 Year
  Sex: Male
  Weight: 56.2 kg

DRUGS (14)
  1. PLAVIX [Suspect]
     Route: 048
  2. WARFARIN SODIUM [Suspect]
     Indication: HEART VALVE REPLACEMENT
     Route: 048
  3. WARFARIN SODIUM [Suspect]
     Route: 048
  4. WARFARIN SODIUM [Suspect]
     Dosage: RANGED FROM 2 TO 4 MG DAILY
     Route: 048
  5. MARIJUANA [Suspect]
     Indication: DEPRESSION
  6. ACETYLSALICYLIC ACID [Suspect]
     Route: 048
  7. FUROSEMIDE [Concomitant]
     Route: 048
  8. METOPROLOL [Concomitant]
     Route: 048
  9. POTASSIUM CHLORIDE [Concomitant]
  10. TRAMADOL HCL [Concomitant]
     Indication: PAIN
     Dosage: Q 6HR PRN PAIN
  11. CARBAMAZEPINE [Concomitant]
  12. VALPROIC ACID [Concomitant]
  13. SERTRALINE HCL [Concomitant]
  14. OMEPRAZOLE [Concomitant]

REACTIONS (5)
  - CONTUSION [None]
  - EPISTAXIS [None]
  - INTERNATIONAL NORMALISED RATIO INCREASED [None]
  - SYNCOPE [None]
  - UPPER GASTROINTESTINAL HAEMORRHAGE [None]
